FAERS Safety Report 9234883 (Version 1)
Quarter: 2013Q2

REPORT INFORMATION
  Report Type: Spontaneous
  Country: US (occurrence: US)
  Receive Date: 20130416
  Receipt Date: 20130416
  Transmission Date: 20140414
  Serious: No
  Sender: FDA-Public Use
  Company Number: US-BANPHARM-20120153

PATIENT
  Age: 79 Year
  Sex: Female
  Weight: 57.6 kg

DRUGS (3)
  1. ALEVE LIQUID GELS 220 MG [Suspect]
     Indication: ARTHRITIS
     Dosage: 1 DF, PRN,
     Route: 048
     Dates: start: 20120907
  2. EFFEXOR [Concomitant]
  3. ACID REFLUX MEDICATION [Concomitant]
     Route: 048

REACTIONS (1)
  - Drug ineffective [Not Recovered/Not Resolved]
